FAERS Safety Report 7128790-8 (Version None)
Quarter: 2010Q4

REPORT INFORMATION
  Report Type: 
  Country: None (occurrence: None)
  Receive Date: 20101130
  Receipt Date: 20101119
  Transmission Date: 20110411
  Serious: Yes (Hospitalization, Other)
  Sender: FDA-Public Use
  Company Number: HU-JNJFOC-20091002143

PATIENT

DRUGS (2)
  1. INFLIXIMAB [Suspect]
     Indication: CROHN'S DISEASE
     Dosage: AT WEEKS 0, 2, AND 6 AND THEN MAINTENANCE THERAPY EVERY 8 WEEKS
     Route: 042
  2. IMMUNOSUPPRESSIVE [Concomitant]

REACTIONS (1)
  - MENINGITIS LISTERIA [None]
